FAERS Safety Report 20715598 (Version 2)
Quarter: 2022Q2

REPORT INFORMATION
  Report Type: Report from Study
  Country: US (occurrence: US)
  Receive Date: 20220415
  Receipt Date: 20220526
  Transmission Date: 20220721
  Serious: Yes (Hospitalization, Other)
  Sender: FDA-Public Use
  Company Number: US-TEVA-2022-US-1998006

PATIENT
  Age: 76 Year
  Sex: Male
  Weight: 121.62 kg

DRUGS (15)
  1. CINQAIR [Suspect]
     Active Substance: RESLIZUMAB
     Dosage: 11/2021
     Route: 042
     Dates: start: 20210701, end: 2021
  2. REFILL BUDESONIDE [Concomitant]
     Dosage: 1MG/2ML SUSPENSION, 2ML BY NEBULIZER TWICE A DAY
     Dates: start: 20220321
  3. FLONASE [Concomitant]
     Active Substance: FLUTICASONE PROPIONATE
     Dosage: 50 MCG/INH,1 SPRAYS INTRANASALLY ONCE A DAY
     Route: 045
  4. CLARITIN [Concomitant]
     Active Substance: LORATADINE
     Dosage: 10 MILLIGRAM DAILY;
     Route: 048
  5. ATROVENT [Concomitant]
     Active Substance: IPRATROPIUM BROMIDE
     Dosage: 21MCG/INH SPRAY, 2 SPRAYS THREE TIMES DAILY
     Route: 045
  6. VITAMIN D3 [Concomitant]
     Active Substance: CHOLECALCIFEROL
     Dosage: 5000 IU (INTERNATIONAL UNIT) DAILY;
     Route: 048
  7. SINGULAIR [Concomitant]
     Active Substance: MONTELUKAST SODIUM
     Dosage: 10 MILLIGRAM DAILY;  AT BEDTIME
     Route: 048
  8. KETOTIFEN [Concomitant]
     Active Substance: KETOTIFEN
     Dosage: OPHTHALMIC 0.025%, 1 GTT IN EACH AFFECTED EYE EVERY 8 HRS
     Route: 047
     Dates: start: 20210704
  9. ANORO ELLIPTA [Concomitant]
     Active Substance: UMECLIDINIUM BROMIDE\VILANTEROL TRIFENATATE
     Dosage: 62.5 MCG-25MCG/INH POWDER, I PUFFS INHALED ONCE A DAY
     Dates: start: 20210528
  10. PROAIR HFA [Concomitant]
     Active Substance: ALBUTEROL SULFATE
     Dosage: 90MCG/INH AEROSAL, 2 PUFFS INHALED 4 TIMES A DAY
  11. BUDESONIDE\FORMOTEROL\GLYCOPYRRONIUM [Concomitant]
     Active Substance: BUDESONIDE\FORMOTEROL\GLYCOPYRRONIUM
     Dosage: 160MCG-4.8 MCG-9 MCG/INH AEROSOL,2 PUFFS INHALED 2 TIMES A DAY
     Dates: end: 20220322
  12. REFILL ALBUTEROL (EQV- PROVENTIL HFA) [Concomitant]
     Dosage: 90 MCG/INH AEROSOL, INHALE 2 PUFFS BY MOUTH FOUR TIMES DAILY INHALED EVERY 6 HOURS PRN
     Route: 048
  13. REFILL ALBUTEROL [Concomitant]
     Dosage: 2.5 MG/3ML (0-083%) SOLUTION, 3ML BY NEBULIZER TWICE A DAY
  14. REFILL IPRATROPIUM [Concomitant]
     Dosage: 500 MCG/2.5 ML SOLUTION, 2.5 ML BY NEBULIZER TWICE A DAY
  15. REFILL ATROVENT HFA CFC FREE [Concomitant]
     Dosage: 17 MCG/INH AEROSOL, 2 PUFFS BY,METERED DOSE INHALER 4 TIMES A DAY

REACTIONS (7)
  - Pneumothorax [Recovered/Resolved]
  - Nephrolithiasis [Unknown]
  - Hospitalisation [Unknown]
  - Pneumonia [Recovered/Resolved]
  - Pain [Unknown]
  - Dysuria [Not Recovered/Not Resolved]
  - General physical health deterioration [Unknown]

NARRATIVE: CASE EVENT DATE: 20210101
